FAERS Safety Report 13271868 (Version 2)
Quarter: 2017Q1

REPORT INFORMATION
  Report Type: Report from Study
  Country: US (occurrence: US)
  Receive Date: 20170227
  Receipt Date: 20170227
  Transmission Date: 20170428
  Serious: Yes (Hospitalization, Other)
  Sender: FDA-Public Use
  Company Number: US-ASTRAZENECA-2017SE20329

PATIENT
  Age: 715 Month
  Sex: Female
  Weight: 45.8 kg

DRUGS (13)
  1. VENTOLIN [Concomitant]
     Active Substance: ALBUTEROL SULFATE
     Indication: EMERGENCY CARE
  2. SPRIVA RESPIMAT [Concomitant]
     Dosage: 2 PUFFS ONCE DAILY
  3. LORTAB [Concomitant]
     Active Substance: ACETAMINOPHEN\HYDROCODONE BITARTRATE
     Dosage: 5/325 MG, THREE TIMES A DAY
  4. LEVO ALBUTEROL NEBUILIZER LIQUID [Concomitant]
     Dosage: 0.63MG, TWO TO THREE TIMES A DAY
  5. CLARINTIN [Concomitant]
  6. VITAMIN D [Concomitant]
     Active Substance: CHOLECALCIFEROL
     Indication: IMMUNE SYSTEM DISORDER
  7. SINGULAIR [Concomitant]
     Active Substance: MONTELUKAST SODIUM
  8. SYMBICORT [Suspect]
     Active Substance: BUDESONIDE\FORMOTEROL FUMARATE DIHYDRATE
     Indication: CHRONIC OBSTRUCTIVE PULMONARY DISEASE
     Dosage: TWO TIMES A DAY
     Route: 055
     Dates: start: 2007
  9. POTASSIUM [Concomitant]
     Active Substance: POTASSIUM
     Dosage: DAILY
  10. PREDNISONE. [Concomitant]
     Active Substance: PREDNISONE
     Dosage: 5 MG OR 10 MG DAILY
  11. CLONAZEPAM. [Concomitant]
     Active Substance: CLONAZEPAM
     Dosage: THREE TIMES A DAY
  12. DALIRESP [Suspect]
     Active Substance: ROFLUMILAST
     Indication: OBSTRUCTIVE AIRWAYS DISORDER
     Route: 048
     Dates: start: 201609
  13. XANAX [Concomitant]
     Active Substance: ALPRAZOLAM

REACTIONS (20)
  - Pulmonary mass [Unknown]
  - Metastases to lung [Unknown]
  - Weight decreased [Unknown]
  - Ligament rupture [Unknown]
  - Headache [Unknown]
  - Chronic sinusitis [Unknown]
  - Temporomandibular joint syndrome [Unknown]
  - Small cell carcinoma [Unknown]
  - Hypotension [Unknown]
  - Balance disorder [Unknown]
  - Nasal injury [Unknown]
  - Dyspnoea [Unknown]
  - Bone pain [Unknown]
  - Influenza [Unknown]
  - Body height decreased [Unknown]
  - Neoplasm malignant [Unknown]
  - Abdominal pain upper [Unknown]
  - Anxiety [Unknown]
  - Arthritis [Unknown]
  - Visual impairment [Unknown]

NARRATIVE: CASE EVENT DATE: 201609
